FAERS Safety Report 12928272 (Version 2)
Quarter: 2016Q4

REPORT INFORMATION
  Report Type: Spontaneous
  Country: GB (occurrence: GB)
  Receive Date: 20161110
  Receipt Date: 20161110
  Transmission Date: 20170207
  Serious: Yes (Disabling)
  Sender: FDA-Public Use
  Company Number: GB-CIPLA LTD.-2016GB20767

PATIENT

DRUGS (5)
  1. BACLOFEN. [Concomitant]
     Active Substance: BACLOFEN
     Dosage: 3 DF, BID
     Route: 065
     Dates: start: 20120702
  2. HYDROCORTISONE. [Concomitant]
     Active Substance: HYDROCORTISONE
     Dosage: 1 DF, APPLY ALL OVER SOLE OF FEET AND BETWEEN TOES TH...
     Route: 061
     Dates: start: 20161019
  3. FLUOXETINE [Concomitant]
     Active Substance: FLUOXETINE HYDROCHLORIDE
     Dosage: 1 DF, QD
     Route: 065
     Dates: start: 20161020
  4. LYMECYCLINE [Concomitant]
     Active Substance: LYMECYCLINE
     Dosage: 1 DF, QD
     Route: 065
     Dates: start: 20161019
  5. CITALOPRAM [Suspect]
     Active Substance: CITALOPRAM HYDROBROMIDE
     Dosage: UNK
     Route: 065
     Dates: start: 20161020

REACTIONS (2)
  - Chest discomfort [Unknown]
  - Dyspnoea [Recovered/Resolved]

NARRATIVE: CASE EVENT DATE: 20161020
